FAERS Safety Report 15692763 (Version 3)
Quarter: 2019Q1

REPORT INFORMATION
  Report Type: Spontaneous
  Country: PL (occurrence: PL)
  Receive Date: 20181206
  Receipt Date: 20190121
  Transmission Date: 20190417
  Serious: Yes (Death)
  Sender: FDA-Public Use
  Company Number: PL-ROCHE-2226022

PATIENT
  Age: 53 Year
  Sex: Male

DRUGS (8)
  1. TRAMETINIB [Concomitant]
     Active Substance: TRAMETINIB
     Route: 065
  2. DABRAFENIB [Concomitant]
     Active Substance: DABRAFENIB
     Route: 065
  3. CISPLATIN. [Concomitant]
     Active Substance: CISPLATIN
     Route: 065
     Dates: start: 201803
  4. VINBLASTINE [Concomitant]
     Active Substance: VINBLASTINE
     Route: 065
     Dates: start: 201803
  5. PREGABALIN. [Concomitant]
     Active Substance: PREGABALIN
  6. ZELBORAF [Suspect]
     Active Substance: VEMURAFENIB
     Indication: MALIGNANT MELANOMA
     Route: 065
     Dates: start: 2018
  7. COTELLIC [Suspect]
     Active Substance: COBIMETINIB
     Indication: MALIGNANT MELANOMA
     Route: 065
     Dates: start: 2018
  8. DACARBAZINE. [Concomitant]
     Active Substance: DACARBAZINE
     Route: 065
     Dates: start: 201803

REACTIONS (1)
  - Death [Fatal]

NARRATIVE: CASE EVENT DATE: 2018
